FAERS Safety Report 11645558 (Version 1)
Quarter: 2015Q4

REPORT INFORMATION
  Report Type: Spontaneous
  Country: US (occurrence: US)
  Receive Date: 20151020
  Receipt Date: 20151020
  Transmission Date: 20160304
  Serious: Yes (Other)
  Sender: FDA-Public Use
  Company Number: US-SMITH AND NEPHEW, INC-2015SMT00411

PATIENT
  Age: 68 Year
  Sex: Male
  Weight: 82 kg

DRUGS (16)
  1. ATORVASTATIN [Concomitant]
     Active Substance: ATORVASTATIN
     Dosage: 20 MG, UNK
  2. ENTERIC ASPIRIN [Concomitant]
     Active Substance: ASPIRIN
     Dosage: 81 MG, UNK
  3. PRAMIPEXOLE. [Concomitant]
     Active Substance: PRAMIPEXOLE
     Dosage: .5 MG, AS NEEDED
  4. REGRANEX [Suspect]
     Active Substance: BECAPLERMIN
     Dosage: UNK UNK, 1X/DAY
     Route: 061
  5. CLOPIDOGREL [Concomitant]
     Active Substance: CLOPIDOGREL BISULFATE
     Dosage: 75 MG, 1X/DAY
  6. STOOL SOFTENER [Concomitant]
     Active Substance: DOCUSATE CALCIUM
  7. TRAZODONE [Concomitant]
     Active Substance: TRAZODONE HYDROCHLORIDE
     Dosage: 50 MG, 1X/DAY
     Route: 048
  8. DIAZEPAM. [Concomitant]
     Active Substance: DIAZEPAM
     Dosage: 2 MG, 1X/DAY
  9. OXYCODONE [Concomitant]
     Active Substance: OXYCODONE
     Dosage: 5 MG, AS NEEDED
  10. BUMETANIDE. [Concomitant]
     Active Substance: BUMETANIDE
     Dosage: 2 MG, 1X/DAY
  11. VITAMINS [Concomitant]
     Active Substance: VITAMINS
     Dosage: UNK, 1X/DAY
  12. SERTRALINE [Concomitant]
     Active Substance: SERTRALINE HYDROCHLORIDE
     Dosage: 25 MG, 1X/DAY
  13. ROPINIROLE. [Concomitant]
     Active Substance: ROPINIROLE
     Dosage: .25 MG, UNK
  14. CALCIUM ACETATE. [Concomitant]
     Active Substance: CALCIUM ACETATE
  15. NOVOLOG [Concomitant]
     Active Substance: INSULIN ASPART
     Dosage: UNK, AS NEEDED
  16. REGRANEX [Suspect]
     Active Substance: BECAPLERMIN
     Indication: DIABETIC FOOT
     Dosage: UNK UNK, 1X/DAY
     Route: 061
     Dates: start: 201508, end: 20150927

REACTIONS (3)
  - Application site erythema [Recovered/Resolved]
  - Cellulitis [Recovered/Resolved]
  - Skin infection [Recovered/Resolved]

NARRATIVE: CASE EVENT DATE: 20150927
